FAERS Safety Report 9679228 (Version 1)
Quarter: 2013Q4

REPORT INFORMATION
  Report Type: Report from Study
  Country: DE (occurrence: DE)
  Receive Date: 20131108
  Receipt Date: 20131108
  Transmission Date: 20140711
  Serious: Yes (Hospitalization)
  Sender: FDA-Public Use
  Company Number: DE-ROCHE-1297876

PATIENT
  Age: 72 Year
  Sex: Female
  Weight: 44.4 kg

DRUGS (5)
  1. BEVACIZUMAB [Suspect]
     Indication: OVARIAN CANCER
     Dosage: DOSE: 771 MG AND 720 MG
     Route: 042
     Dates: start: 20130801, end: 20130801
  2. CARBOPLATIN [Suspect]
     Indication: OVARIAN CANCER
     Dosage: DOSE: 191.7 MG AND 305 MG, LAST DOSE PRIOR TO SAE: 29/AUG/2013
     Route: 042
     Dates: start: 20130801
  3. CARBOPLATIN [Suspect]
     Dosage: LAST DOSE PRIOR TO SAE: 21/OCT/2013
     Route: 042
     Dates: start: 20131021
  4. PACLITAXEL [Suspect]
     Indication: OVARIAN CANCER
     Dosage: DOSE: 220 MG AND 257.25 MG, LAST DOSE PRIOR TO SAE: 29/AUG/2013
     Route: 042
     Dates: start: 20130711
  5. PACLITAXEL [Suspect]
     Dosage: LAST DOSE PRIOR TO SAE: 21/OCT/2013
     Route: 042
     Dates: start: 20131021

REACTIONS (3)
  - General physical health deterioration [Not Recovered/Not Resolved]
  - Abdominal pain upper [Not Recovered/Not Resolved]
  - Dysarthria [Not Recovered/Not Resolved]
